FAERS Safety Report 22350889 (Version 1)
Quarter: 2023Q2

REPORT INFORMATION
  Report Type: Spontaneous
  Country: US (occurrence: US)
  Receive Date: 20230522
  Receipt Date: 20230522
  Transmission Date: 20230721
  Serious: Yes (Hospitalization, Other)
  Sender: FDA-Public Use
  Company Number: US-OTSUKA-2023_012533

PATIENT
  Age: 50 Year
  Sex: Female
  Weight: 111.13 kg

DRUGS (5)
  1. ABILIFY [Suspect]
     Active Substance: ARIPIPRAZOLE
     Indication: Depression
     Dosage: 2 MG
     Route: 065
     Dates: start: 201809
  2. ABILIFY [Suspect]
     Active Substance: ARIPIPRAZOLE
     Indication: Anxiety
     Dosage: DOSE INCREASED
     Route: 065
     Dates: start: 201904
  3. ABILIFY [Suspect]
     Active Substance: ARIPIPRAZOLE
     Indication: Post-traumatic stress disorder
     Dosage: AGAIN DOSE INCREASED
     Route: 065
     Dates: start: 201906
  4. ABILIFY [Suspect]
     Active Substance: ARIPIPRAZOLE
     Indication: Injury
     Dosage: 7MG OF ABILIFY (5MG +2MG)
     Route: 065
     Dates: end: 20190820
  5. EFFEXOR [Concomitant]
     Active Substance: VENLAFAXINE HYDROCHLORIDE
     Indication: Product used for unknown indication
     Dosage: UNK
     Route: 065

REACTIONS (5)
  - Suicidal ideation [Recovered/Resolved]
  - Gambling disorder [Recovered/Resolved]
  - Therapy cessation [Unknown]
  - Product use in unapproved indication [Unknown]
  - Loss of employment [Unknown]

NARRATIVE: CASE EVENT DATE: 20180901
